FAERS Safety Report 17801208 (Version 1)
Quarter: 2020Q2

REPORT INFORMATION
  Report Type: Spontaneous
  Country: AU (occurrence: AU)
  Receive Date: 20200519
  Receipt Date: 20200519
  Transmission Date: 20200714
  Serious: Yes (Other)
  Sender: FDA-Public Use
  Company Number: AU-ADVANZ PHARMA-202005005223

PATIENT

DRUGS (5)
  1. PROPRANOLOL [Suspect]
     Active Substance: PROPRANOLOL HYDROCHLORIDE
     Dosage: UNK
  2. PRAZOSIN. [Suspect]
     Active Substance: PRAZOSIN
     Dosage: UNK
  3. INSULIN [Suspect]
     Active Substance: INSULIN NOS
     Dosage: UNK
  4. PHENOXYBENZAMINE [Suspect]
     Active Substance: PHENOXYBENZAMINE
     Dosage: UNK
  5. MAGNESIUM SULFATE. [Concomitant]
     Active Substance: MAGNESIUM SULFATE

REACTIONS (2)
  - Premature delivery [Unknown]
  - Exposure during pregnancy [Unknown]
